FAERS Safety Report 9143316 (Version 1)
Quarter: 2013Q1

REPORT INFORMATION
  Report Type: Spontaneous
  Country: US (occurrence: US)
  Receive Date: 20130306
  Receipt Date: 20130306
  Transmission Date: 20140127
  Serious: No
  Sender: FDA-Public Use
  Company Number: US-ENDO PHARMACEUTICALS INC.-OPER20110258

PATIENT
  Sex: Male
  Weight: 90.8 kg

DRUGS (1)
  1. OPANA ER [Suspect]
     Indication: BACK PAIN
     Route: 048
     Dates: start: 201103, end: 201106

REACTIONS (1)
  - Erectile dysfunction [Not Recovered/Not Resolved]
